FAERS Safety Report 9963283 (Version 1)
Quarter: 2014Q1

REPORT INFORMATION
  Report Type: Report from Study
  Country: US (occurrence: US)
  Receive Date: 20140305
  Receipt Date: 20140305
  Transmission Date: 20141002
  Serious: No
  Sender: FDA-Public Use
  Company Number: US-ABBVIE-13P-163-1119395-00

PATIENT
  Age: 56 Year
  Sex: Female

DRUGS (11)
  1. HUMIRA [Suspect]
     Indication: CROHN^S DISEASE
     Dates: start: 20130616
  2. HUMIRA [Suspect]
     Dates: start: 20130630
  3. POTASSIUM CHLORIDE [Concomitant]
     Indication: HYPOKALAEMIA
  4. POTASSIUM CHLORIDE [Concomitant]
     Indication: CROHN^S DISEASE
  5. VENLAFAXINE HCL [Concomitant]
     Indication: DEPRESSION
  6. B-12 [Concomitant]
     Indication: CROHN^S DISEASE
  7. BUSPIRONE HCL [Concomitant]
     Indication: ANXIETY
  8. ALIGN [Concomitant]
     Indication: ANTIBIOTIC THERAPY
  9. ALIGN [Concomitant]
     Indication: INFECTION
  10. ALIGN [Concomitant]
     Indication: CROHN^S DISEASE
  11. TRAMADOL [Concomitant]
     Indication: ARTHRALGIA

REACTIONS (5)
  - Joint swelling [Not Recovered/Not Resolved]
  - Arthralgia [Not Recovered/Not Resolved]
  - Dizziness [Not Recovered/Not Resolved]
  - Headache [Not Recovered/Not Resolved]
  - Local swelling [Not Recovered/Not Resolved]
